FAERS Safety Report 9226896 (Version 1)
Quarter: 2013Q2

REPORT INFORMATION
  Report Type: Report from Study
  Country: US (occurrence: US)
  Receive Date: 20130412
  Receipt Date: 20130412
  Transmission Date: 20140414
  Serious: Yes (Life-Threatening, Other)
  Sender: FDA-Public Use
  Company Number: US-JNJFOC-20130404636

PATIENT
  Age: 55 Year
  Sex: Female

DRUGS (1)
  1. NUCYNTA ER [Suspect]
     Indication: PRODUCT USED FOR UNKNOWN INDICATION
     Route: 048

REACTIONS (7)
  - Intentional overdose [Recovering/Resolving]
  - Incoherent [Recovering/Resolving]
  - Pulmonary oedema [Unknown]
  - Aspiration [Unknown]
  - Sedation [Recovering/Resolving]
  - Restlessness [Recovering/Resolving]
  - Pyrexia [Unknown]
